FAERS Safety Report 17942802 (Version 17)
Quarter: 2021Q2

REPORT INFORMATION
  Report Type: Report from Study
  Country: JP (occurrence: JP)
  Receive Date: 20200625
  Receipt Date: 20210616
  Transmission Date: 20210717
  Serious: Yes (Hospitalization)
  Sender: FDA-Public Use
  Company Number: NVSJ2020JP005934

PATIENT
  Age: 1 Year
  Sex: Female
  Weight: 6.7 kg

DRUGS (9)
  1. NUSINERSEN [Concomitant]
     Active Substance: NUSINERSEN
     Dosage: UNK
     Route: 065
     Dates: start: 20191113
  2. PREDNISOLONE. [Concomitant]
     Active Substance: PREDNISOLONE
     Dosage: 1.7 MG/DAY (0.25 MG/KG)
     Route: 048
     Dates: start: 20200805, end: 20200818
  3. NUSINERSEN [Concomitant]
     Active Substance: NUSINERSEN
     Indication: PRODUCT USED FOR UNKNOWN INDICATION
     Dosage: UNK
     Route: 065
     Dates: start: 20191030
  4. PREDNISOLONE. [Concomitant]
     Active Substance: PREDNISOLONE
     Dosage: 3.4 MG/DAY (0.5 MG/KG)
     Route: 048
     Dates: start: 20200722, end: 20200804
  5. NUSINERSEN [Concomitant]
     Active Substance: NUSINERSEN
     Dosage: UNK
     Route: 065
     Dates: start: 20200427
  6. NUSINERSEN [Concomitant]
     Active Substance: NUSINERSEN
     Dosage: UNK
     Route: 065
     Dates: start: 20191127
  7. ZOLGENSMA [Suspect]
     Active Substance: ONASEMNOGENE ABEPARVOVEC-XIOI
     Indication: SPINAL MUSCULAR ATROPHY
     Dosage: 38.5 ML (1.1 X E14VG/KG), ONCE/SINGLE
     Route: 041
     Dates: start: 20200611, end: 20200611
  8. NUSINERSEN [Concomitant]
     Active Substance: NUSINERSEN
     Dosage: UNK
     Route: 065
     Dates: start: 20200108
  9. PREDNISOLONE. [Concomitant]
     Active Substance: PREDNISOLONE
     Indication: PROPHYLAXIS
     Dosage: 6.7 MG (1MG/KG)
     Route: 048
     Dates: start: 20200610, end: 20200721

REACTIONS (27)
  - Thrombocytopenia [Recovered/Resolved]
  - Hepatic function abnormal [Recovered/Resolved]
  - Aspartate aminotransferase increased [Recovered/Resolved]
  - Pneumonia aspiration [Recovered/Resolved]
  - Tachycardia [Unknown]
  - Tachypnoea [Unknown]
  - Vomiting [Recovered/Resolved]
  - Haemorrhage subcutaneous [Unknown]
  - Pneumonia aspiration [Recovered/Resolved]
  - Hypoxia [Unknown]
  - Mood altered [Unknown]
  - Dyspnoea [Unknown]
  - Acute respiratory failure [Recovered/Resolved]
  - Alanine aminotransferase increased [Recovered/Resolved]
  - Breath sounds abnormal [Unknown]
  - Atelectasis [Recovered/Resolved]
  - Pyrexia [Recovered/Resolved]
  - Atelectasis [Not Recovered/Not Resolved]
  - Viral upper respiratory tract infection [Recovered/Resolved]
  - Pyrexia [Recovered/Resolved]
  - Blood lactate dehydrogenase increased [Recovered/Resolved]
  - Dyspnoea [Unknown]
  - Pyrexia [Unknown]
  - Pneumonia [Not Recovered/Not Resolved]
  - Pyrexia [Recovered/Resolved]
  - Rhinorrhoea [Unknown]
  - Pneumonia viral [Not Recovered/Not Resolved]

NARRATIVE: CASE EVENT DATE: 20200613
